FAERS Safety Report 23350038 (Version 1)
Quarter: 2023Q4

REPORT INFORMATION
  Report Type: Spontaneous
  Country: PT (occurrence: PT)
  Receive Date: 20231229
  Receipt Date: 20231229
  Transmission Date: 20240109
  Serious: Yes (Hospitalization, Other)
  Sender: FDA-Public Use
  Company Number: PT-MLMSERVICE-20231213-4724218-1

PATIENT
  Age: 55 Year
  Sex: Male

DRUGS (2)
  1. ROPINIROLE HYDROCHLORIDE [Suspect]
     Active Substance: ROPINIROLE HYDROCHLORIDE
     Indication: Parkinson^s disease
  2. LEVODOPA [Suspect]
     Active Substance: LEVODOPA
     Indication: Parkinson^s disease
     Dosage: TOTAL DOSE

REACTIONS (4)
  - Mania [Recovered/Resolved]
  - Compulsive shopping [Recovered/Resolved]
  - Impulse-control disorder [Recovered/Resolved]
  - Dopamine dysregulation syndrome [Recovered/Resolved]
